FAERS Safety Report 21556877 (Version 1)
Quarter: 2022Q4

REPORT INFORMATION
  Report Type: Spontaneous
  Country: EG (occurrence: EG)
  Receive Date: 20221104
  Receipt Date: 20221104
  Transmission Date: 20230113
  Serious: Yes (Other)
  Sender: FDA-Public Use
  Company Number: EG-002147023-NVSC2022EG246234

PATIENT
  Sex: Female

DRUGS (5)
  1. TOBRADEX [Suspect]
     Active Substance: DEXAMETHASONE\TOBRAMYCIN
     Indication: Product used for unknown indication
     Dosage: (FROM 20 JUL TILL 19 SEP)
     Route: 065
  2. ATROPINE [Concomitant]
     Active Substance: ATROPINE
     Indication: Product used for unknown indication
     Dosage: UNK
     Route: 065
  3. IMURAN [Concomitant]
     Active Substance: AZATHIOPRINE
     Indication: Rheumatoid arthritis
     Dosage: UNK
     Route: 065
  4. BRIMONIDINE [Concomitant]
     Active Substance: BRIMONIDINE TARTRATE
     Indication: Product used for unknown indication
     Dosage: UNK
     Route: 065
  5. TWINZOL [Concomitant]
     Indication: Product used for unknown indication
     Dosage: UNK
     Route: 065

REACTIONS (10)
  - Corneal perforation [Unknown]
  - Cataract [Unknown]
  - Hypotony of eye [Unknown]
  - Ulcerative keratitis [Unknown]
  - Eye abscess [Unknown]
  - Glaucoma [Unknown]
  - Conjunctivitis [Unknown]
  - Bacterial infection [Unknown]
  - Fungal infection [Unknown]
  - Vision blurred [Unknown]
